FAERS Safety Report 5706602-4 (Version None)
Quarter: 2008Q2

REPORT INFORMATION
  Report Type: 
  Country: None (occurrence: None)
  Receive Date: 20080415
  Receipt Date: 20080401
  Transmission Date: 20081010
  Serious: Yes (Other)
  Sender: FDA-Public Use
  Company Number: US-ELI_LILLY_AND_COMPANY-US200802005603

PATIENT
  Sex: Female

DRUGS (9)
  1. STRATTERA [Suspect]
     Indication: ATTENTION DEFICIT/HYPERACTIVITY DISORDER
     Dosage: 100 MG, DAILY (1/D)
     Dates: start: 20070801
  2. NEURONTIN [Concomitant]
     Dosage: 300 MG, 2/D
  3. VYTORIN [Concomitant]
     Dosage: UNK, DAILY (1/D)
  4. EVISTA [Concomitant]
     Dosage: 60 MG, DAILY (1/D)
  5. ISOSORBIDE DINITRATE [Concomitant]
     Dosage: 30 UNK, UNK
  6. HYZAAR [Concomitant]
     Dosage: 50 UNK, UNK
  7. HYZAAR [Concomitant]
     Dosage: 12.5 UNK, UNK
  8. AMLODIPINE [Concomitant]
     Dosage: 2.5 UNK, UNK
  9. COQ10 [Concomitant]

REACTIONS (4)
  - ABNORMAL DREAMS [None]
  - DRY MOUTH [None]
  - FATIGUE [None]
  - NOCTURIA [None]
